FAERS Safety Report 17787058 (Version 2)
Quarter: 2020Q2

REPORT INFORMATION
  Report Type: Spontaneous
  Country: DE (occurrence: DE)
  Receive Date: 20200514
  Receipt Date: 20200603
  Transmission Date: 20200714
  Serious: Yes (Hospitalization, Other)
  Sender: FDA-Public Use
  Company Number: DE-TAKEDA-2020TUS022180

PATIENT
  Age: 80 Year
  Sex: Male
  Weight: 78 kg

DRUGS (4)
  1. LOPERAMIDE [Concomitant]
     Active Substance: LOPERAMIDE
     Indication: COLITIS ULCERATIVE
     Dosage: UNK
  2. ENTYVIO [Suspect]
     Active Substance: VEDOLIZUMAB
     Indication: COLITIS ULCERATIVE
     Dosage: 300 MILLIGRAM
     Route: 042
  3. PENTASA [Concomitant]
     Active Substance: MESALAMINE
     Indication: COLITIS ULCERATIVE
     Dosage: 4 GRAM, QD
  4. CORTIMENT                          /00028601/ [Concomitant]
     Active Substance: HYDROCORTISONE
     Indication: COLITIS ULCERATIVE
     Dosage: 3 MILLIGRAM

REACTIONS (2)
  - Dyspnoea [Unknown]
  - Myocardial infarction [Unknown]

NARRATIVE: CASE EVENT DATE: 20200429
